FAERS Safety Report 25175328 (Version 2)
Quarter: 2025Q2

REPORT INFORMATION
  Report Type: Spontaneous
  Country: ES (occurrence: ES)
  Receive Date: 20250408
  Receipt Date: 20250425
  Transmission Date: 20250716
  Serious: Yes (Other)
  Sender: PURDUE
  Company Number: ES-MLMSERVICE-20250324-PI457090-00145-1

PATIENT
  Age: 66 Year
  Sex: Male

DRUGS (26)
  1. OXYCODONE HYDROCHLORIDE [Suspect]
     Active Substance: OXYCODONE HYDROCHLORIDE
     Indication: Cancer pain
     Dosage: 20 MILLIGRAM, Q8H
     Route: 065
  2. MORPHINE SULFATE [Suspect]
     Active Substance: MORPHINE SULFATE
     Indication: Cancer pain
     Dosage: 1.5 MILLIGRAM INTRATHECAL CONTINUOUS PERFUSION PUMP
     Route: 037
  3. FENTANYL [Suspect]
     Active Substance: FENTANYL
     Indication: Cancer pain
     Dosage: 37.5 ?G/H/72H
  4. FENTANYL [Suspect]
     Active Substance: FENTANYL
     Dosage: INCREASED , 50 ?G/H/72H
     Route: 062
  5. FENTANYL [Suspect]
     Active Substance: FENTANYL
     Dosage: PROGRESSIVELY INCREASED THE DOSE TO125 ?G/H/72H
     Route: 062
  6. FENTANYL [Suspect]
     Active Substance: FENTANYL
     Route: 060
  7. TAPENTADOL [Suspect]
     Active Substance: TAPENTADOL
     Indication: Cancer pain
     Route: 065
  8. TAPENTADOL [Suspect]
     Active Substance: TAPENTADOL
  9. METHADONE [Suspect]
     Active Substance: METHADONE HYDROCHLORIDE
     Indication: Cancer pain
     Dosage: 10 MILLIGRAM, Q12H
  10. DEXAMETHASONE [Concomitant]
     Active Substance: DEXAMETHASONE
     Indication: Product used for unknown indication
     Route: 065
  11. DEXAMETHASONE [Concomitant]
     Active Substance: DEXAMETHASONE
  12. PREGABALIN [Concomitant]
     Active Substance: PREGABALIN
     Indication: Neuralgia
     Route: 065
  13. PREGABALIN [Concomitant]
     Active Substance: PREGABALIN
  14. CARBOPLATIN [Concomitant]
     Active Substance: CARBOPLATIN
     Indication: Lung adenocarcinoma stage IV
     Route: 065
  15. CARBOPLATIN [Concomitant]
     Active Substance: CARBOPLATIN
     Indication: Metastases to bone
  16. PACLITAXEL [Concomitant]
     Active Substance: PACLITAXEL
     Indication: Lung adenocarcinoma stage IV
     Route: 065
  17. PACLITAXEL [Concomitant]
     Active Substance: PACLITAXEL
     Indication: Metastases to bone
  18. METAMIZOLE [Concomitant]
     Active Substance: METAMIZOLE
     Indication: Product used for unknown indication
  19. ACETAMINOPHEN\THIOCOLCHICOSIDE [Concomitant]
     Active Substance: ACETAMINOPHEN\THIOCOLCHICOSIDE
     Indication: Product used for unknown indication
     Route: 065
  20. ACETAMINOPHEN\THIOCOLCHICOSIDE [Concomitant]
     Active Substance: ACETAMINOPHEN\THIOCOLCHICOSIDE
  21. IBUPROFEN [Concomitant]
     Active Substance: IBUPROFEN
     Indication: Cancer pain
     Dosage: 600 MILLIGRAM, Q8H
     Route: 065
  22. ACETAMINOPHEN [Concomitant]
     Active Substance: ACETAMINOPHEN
     Indication: Cancer pain
     Route: 065
  23. BUPIVACAINE [Concomitant]
     Active Substance: BUPIVACAINE
     Indication: Cancer pain
     Dosage: 4.26 MILLIGRAM, DAILY INTRATHECAL CONTINUOUS PERFUSION PUMP
     Route: 037
  24. NALOXEGOL [Concomitant]
     Active Substance: NALOXEGOL
     Indication: Constipation
     Route: 065
  25. MAGNESIUM OXIDE [Concomitant]
     Active Substance: MAGNESIUM OXIDE
     Indication: Constipation
     Route: 065
  26. PARAFFIN [Concomitant]
     Active Substance: PARAFFIN
     Indication: Constipation
     Route: 065

REACTIONS (3)
  - Constipation [Recovered/Resolved]
  - Intestinal obstruction [Recovering/Resolving]
  - Drug ineffective [Unknown]
